FAERS Safety Report 7888178-9 (Version None)
Quarter: 2011Q4

REPORT INFORMATION
  Report Type: 
  Country: None (occurrence: None)
  Receive Date: 20111103
  Receipt Date: 20111025
  Transmission Date: 20120403
  Serious: Yes (Other)
  Sender: FDA-Public Use
  Company Number: DK-JNJFOC-20111007993

PATIENT
  Age: 27 Year
  Sex: Female

DRUGS (9)
  1. RISPERDAL [Suspect]
     Dosage: 0.5MG AS NEEDED WITH 4MG
     Route: 065
  2. AKARIN [Suspect]
  3. ARIPIPRAZOLE [Concomitant]
  4. RISPERDAL [Suspect]
     Route: 065
  5. AKARIN [Suspect]
  6. DIAZEPAM [Concomitant]
     Route: 065
  7. ESCITALOPRAM [Concomitant]
  8. RISPERDAL [Suspect]
     Indication: PSYCHOTIC DISORDER
     Route: 065
  9. AKARIN [Suspect]
     Indication: PSYCHOTIC DISORDER

REACTIONS (11)
  - MATERNAL EXPOSURE DURING PREGNANCY [None]
  - DECREASED INTEREST [None]
  - HALLUCINATION, AUDITORY [None]
  - CAESAREAN SECTION [None]
  - ANHEDONIA [None]
  - SUICIDAL IDEATION [None]
  - FATIGUE [None]
  - DEPRESSION [None]
  - MORBID THOUGHTS [None]
  - PAIN [None]
  - PSYCHOTIC DISORDER [None]
